FAERS Safety Report 22524490 (Version 1)
Quarter: 2023Q2

REPORT INFORMATION
  Report Type: Spontaneous
  Country: JP (occurrence: JP)
  Receive Date: 20230606
  Receipt Date: 20230606
  Transmission Date: 20230721
  Serious: Yes (Hospitalization)
  Sender: FDA-Public Use
  Company Number: JP-TEVA-2023-JP-2894195

PATIENT
  Age: 62 Year
  Sex: Male

DRUGS (4)
  1. ROSUVASTATIN [Interacting]
     Active Substance: ROSUVASTATIN
     Indication: Dyslipidaemia
     Dosage: 10 MILLIGRAM DAILY;
     Route: 065
  2. VADADUSTAT [Interacting]
     Active Substance: VADADUSTAT
     Indication: Dyslipidaemia
     Dosage: 300 MILLIGRAM DAILY;
     Route: 065
  3. AZOSEMIDE [Suspect]
     Active Substance: AZOSEMIDE
     Indication: Peripheral swelling
     Dosage: 15 MILLIGRAM DAILY;
     Route: 065
  4. Epoetin beta pegol [Concomitant]
     Indication: Nephrogenic anaemia
     Route: 065

REACTIONS (2)
  - Rhabdomyolysis [Recovering/Resolving]
  - Drug interaction [Unknown]
